FAERS Safety Report 6148082-3 (Version None)
Quarter: 2009Q2

REPORT INFORMATION
  Report Type: 
  Country: None (occurrence: None)
  Receive Date: 20090408
  Receipt Date: 20090401
  Transmission Date: 20091009
  Serious: Yes (Death)
  Sender: FDA-Public Use
  Company Number: B0567986A

PATIENT
  Age: 68 Year
  Sex: Male
  Weight: 90 kg

DRUGS (10)
  1. PAROXETINE HCL [Suspect]
  2. PARACETAMOL [Suspect]
  3. CANDESARTAN [Concomitant]
     Dosage: 16MG PER DAY
  4. CETIRIZINE [Concomitant]
     Dosage: 10MG PER DAY
     Route: 048
  5. DIAZEPAM [Concomitant]
     Dosage: 8MG PER DAY
     Route: 048
  6. MOMETASONE FUROATE [Concomitant]
     Dosage: 100MCG PER DAY
     Route: 045
  7. OMEPRAZOLE [Concomitant]
     Dosage: 10MG PER DAY
     Route: 048
  8. SIMVASTATIN [Concomitant]
     Dosage: 80MG PER DAY
  9. ZOPICLONE [Concomitant]
     Dosage: 7.5MG PER DAY
  10. VENLAFAXINE HCL [Concomitant]
     Dates: start: 20090226, end: 20090305

REACTIONS (2)
  - DEATH [None]
  - OVERDOSE [None]
